FAERS Safety Report 24160896 (Version 1)
Quarter: 2024Q3

REPORT INFORMATION
  Report Type: Report from Study
  Country: US (occurrence: None)
  Receive Date: 20240801
  Receipt Date: 20240801
  Transmission Date: 20241017
  Serious: Yes (Hospitalization)
  Sender: ASTRAZENECA
  Company Number: 2024A169211

PATIENT
  Sex: Female
  Weight: 46 kg

DRUGS (1)
  1. CALQUENCE [Suspect]
     Active Substance: ACALABRUTINIB
     Indication: Chronic lymphocytic leukaemia
     Route: 048
     Dates: start: 20220122

REACTIONS (8)
  - Neuralgia [Not Recovered/Not Resolved]
  - Palpitations [Unknown]
  - Hypertension [Unknown]
  - Atrial fibrillation [Unknown]
  - Cold sweat [Unknown]
  - Hypotension [Not Recovered/Not Resolved]
  - Dizziness [Not Recovered/Not Resolved]
  - Dysphonia [Unknown]
